FAERS Safety Report 13090680 (Version 2)
Quarter: 2017Q1

REPORT INFORMATION
  Report Type: Spontaneous
  Country: GB (occurrence: GB)
  Receive Date: 20170105
  Receipt Date: 20170116
  Transmission Date: 20170428
  Serious: Yes (Other)
  Sender: FDA-Public Use
  Company Number: GB-CONCORDIA PHARMACEUTICALS INC.-GSH201701-000041

PATIENT
  Age: 61 Year
  Sex: Female

DRUGS (8)
  1. PENTAMIDINE NEBULISER [Concomitant]
  2. INDINAVIR [Concomitant]
     Active Substance: INDINAVIR
  3. LAMIVUDINE. [Concomitant]
     Active Substance: LAMIVUDINE
  4. WARFARIN [Concomitant]
     Active Substance: WARFARIN
     Dosage: ON ALTERNATING DAYS
  5. DIGOXIN. [Suspect]
     Active Substance: DIGOXIN
     Indication: ATRIAL FIBRILLATION
  6. RITONAVIR. [Suspect]
     Active Substance: RITONAVIR
  7. STAVUDINE. [Concomitant]
     Active Substance: STAVUDINE
  8. WARFARIN [Concomitant]
     Active Substance: WARFARIN
     Dosage: ON ALTERNATING DAYS

REACTIONS (2)
  - Toxicity to various agents [Unknown]
  - Drug interaction [Unknown]
